FAERS Safety Report 25826720 (Version 1)
Quarter: 2025Q3

REPORT INFORMATION
  Report Type: Report from Study
  Country: US (occurrence: US)
  Receive Date: 20250920
  Receipt Date: 20250920
  Transmission Date: 20251021
  Serious: Yes (Other)
  Sender: UCB
  Company Number: US-UCBSA-2025053327

PATIENT
  Sex: Female

DRUGS (2)
  1. ROTIGOTINE [Suspect]
     Active Substance: ROTIGOTINE
     Indication: Parkinson^s disease
     Dosage: 1 MILLIGRAM, ONCE DAILY (QD)
     Route: 062
     Dates: start: 2023
  2. ROTIGOTINE [Suspect]
     Active Substance: ROTIGOTINE
     Indication: Multiple system atrophy

REACTIONS (3)
  - Parkinsonism [Not Recovered/Not Resolved]
  - Therapeutic product effect decreased [Unknown]
  - Product use in unapproved indication [Unknown]
